FAERS Safety Report 10495221 (Version 1)
Quarter: 2014Q3

REPORT INFORMATION
  Report Type: Spontaneous
  Country: US (occurrence: None)
  Receive Date: 20140815
  Receipt Date: 20140815
  Transmission Date: 20150326
  Serious: Yes (Other)
  Sender: FDA-Public Use
  Company Number: ADR-2014-00502

PATIENT

DRUGS (2)
  1. BACLOFEN INTRATHECAL 20 #MG/ML# [Suspect]
     Active Substance: BACLOFEN
     Dosage: 6 MCG/DAY
  2. CLONIDINE 10 MG/ML [Suspect]
     Active Substance: CLONIDINE
     Dosage: 3 MG/DAY

REACTIONS (1)
  - Drug withdrawal syndrome [None]

NARRATIVE: CASE EVENT DATE: 20140317
